FAERS Safety Report 21682422 (Version 1)
Quarter: 2022Q4

REPORT INFORMATION
  Report Type: Other
  Country: US (occurrence: None)
  Receive Date: 20221205
  Receipt Date: 20221205
  Transmission Date: 20230112
  Serious: Yes (Hospitalization)
  Sender: FDA-Public Use
  Company Number: US-ROCHE-3223967

PATIENT
  Age: 54 Year
  Sex: Female
  Weight: 118.04 kg

DRUGS (15)
  1. OCREVUS [Suspect]
     Active Substance: OCRELIZUMAB
     Indication: Relapsing-remitting multiple sclerosis
     Dosage: DATE OF SERVICE:  02/MAY/2018, 16/MAY/2018, 31/OCT/2018, 22/MAY/2020
     Route: 042
  2. VALIUM [Suspect]
     Active Substance: DIAZEPAM
     Indication: Multiple sclerosis
     Route: 065
  3. CELEXA [Concomitant]
     Active Substance: CITALOPRAM HYDROBROMIDE
  4. FLEXERIL [Concomitant]
     Active Substance: CYCLOBENZAPRINE HYDROCHLORIDE
  5. NORCO [Concomitant]
     Active Substance: ACETAMINOPHEN\HYDROCODONE BITARTRATE
  6. ZESTRIL [Concomitant]
     Active Substance: LISINOPRIL
  7. ULTRAM [Concomitant]
     Active Substance: TRAMADOL HYDROCHLORIDE
  8. TEGRETOL [Concomitant]
     Active Substance: CARBAMAZEPINE
  9. PRILOSEC [Concomitant]
     Active Substance: OMEPRAZOLE MAGNESIUM
  10. XYZAL [Concomitant]
     Active Substance: LEVOCETIRIZINE DIHYDROCHLORIDE
  11. LIORESAL [Concomitant]
     Active Substance: BACLOFEN
  12. ELAVIL [Concomitant]
     Active Substance: AMITRIPTYLINE HYDROCHLORIDE
  13. NEURONTIN [Concomitant]
     Active Substance: GABAPENTIN
  14. NAPROSYN [Concomitant]
     Active Substance: NAPROXEN
  15. UROCIT-K [Concomitant]
     Active Substance: POTASSIUM CITRATE

REACTIONS (6)
  - Pain [Unknown]
  - Cholecystitis acute [Unknown]
  - Muscle spasms [Unknown]
  - Breakthrough pain [Unknown]
  - Off label use [Unknown]
  - Off label use [Unknown]

NARRATIVE: CASE EVENT DATE: 20221018
